FAERS Safety Report 20134166 (Version 1)
Quarter: 2021Q4

REPORT INFORMATION
  Report Type: Report from Study
  Country: CA (occurrence: CA)
  Receive Date: 20211201
  Receipt Date: 20211201
  Transmission Date: 20220303
  Serious: Yes (Other)
  Sender: FDA-Public Use
  Company Number: CA-ABBVIE-21K-028-4179421-00

PATIENT
  Sex: Male

DRUGS (3)
  1. HUMIRA [Suspect]
     Active Substance: ADALIMUMAB
     Indication: Crohn^s disease
     Route: 058
     Dates: start: 20161202
  2. FOLIC ACID [Suspect]
     Active Substance: FOLIC ACID
     Indication: Product used for unknown indication
     Route: 065
  3. METHOTREXATE [Concomitant]
     Active Substance: METHOTREXATE
     Indication: Product used for unknown indication
     Dates: end: 202107

REACTIONS (18)
  - Surgery [Unknown]
  - Post procedural complication [Unknown]
  - Peritonitis [Unknown]
  - Nephrolithiasis [Unknown]
  - Amnesia [Unknown]
  - Post procedural complication [Unknown]
  - Feeling abnormal [Unknown]
  - Adverse drug reaction [Unknown]
  - Adverse food reaction [Unknown]
  - Dyspepsia [Unknown]
  - Dry mouth [Unknown]
  - Fall [Unknown]
  - Dry eye [Unknown]
  - Nephrolithiasis [Unknown]
  - Nephrolithiasis [Recovered/Resolved]
  - Abdominal pain upper [Unknown]
  - Diarrhoea [Not Recovered/Not Resolved]
  - Pain [Unknown]

NARRATIVE: CASE EVENT DATE: 20190101
